FAERS Safety Report 21884259 (Version 2)
Quarter: 2023Q1

REPORT INFORMATION
  Report Type: Spontaneous
  Country: US (occurrence: US)
  Receive Date: 20230119
  Receipt Date: 20230210
  Transmission Date: 20230417
  Serious: Yes (Life-Threatening, Hospitalization)
  Sender: FDA-Public Use
  Company Number: US-TEVA-2023-US-2845897

PATIENT
  Age: 58 Year
  Sex: Female

DRUGS (5)
  1. DEXAMETHASONE [Suspect]
     Active Substance: DEXAMETHASONE
     Indication: COVID-19 pneumonia
     Dosage: 6 MILLIGRAM DAILY; ONCE A DAY
     Route: 065
  2. ACYCLOVIR [Suspect]
     Active Substance: ACYCLOVIR
     Indication: Herpes simplex
     Dosage: 20 MG/KG DAILY; TWICE A DAY
     Route: 042
  3. TOFACITINIB [Suspect]
     Active Substance: TOFACITINIB
     Indication: COVID-19 pneumonia
     Dosage: 20 MILLIGRAM DAILY; TWICE A DAY
     Route: 065
  4. REMDESIVIR [Concomitant]
     Active Substance: REMDESIVIR
     Indication: Respiratory failure
     Dosage: ON DAY 1, 200 MG
     Route: 065
  5. REMDESIVIR [Concomitant]
     Active Substance: REMDESIVIR
     Indication: COVID-19 pneumonia
     Dosage: 100 MG
     Route: 065

REACTIONS (18)
  - Liver injury [Unknown]
  - Acute kidney injury [Unknown]
  - Encephalopathy [Unknown]
  - Respiratory distress [Unknown]
  - Septic shock [Unknown]
  - Enterococcal infection [Unknown]
  - Enterococcal bacteraemia [Unknown]
  - Herpes simplex [Unknown]
  - Pneumonia viral [Unknown]
  - Haemophagocytic lymphohistiocytosis [Unknown]
  - Drug ineffective [Unknown]
  - Coagulopathy [Unknown]
  - Metabolic acidosis [Unknown]
  - Haematoma [Unknown]
  - Brain stem syndrome [Unknown]
  - Areflexia [Unknown]
  - Subarachnoid haemorrhage [Unknown]
  - Off label use [Unknown]
